FAERS Safety Report 25992916 (Version 1)
Quarter: 2025Q4

REPORT INFORMATION
  Report Type: Spontaneous
  Country: GB (occurrence: GB)
  Receive Date: 20251103
  Receipt Date: 20251103
  Transmission Date: 20260118
  Serious: Yes (Life-Threatening, Hospitalization, Other)
  Sender: TEVA
  Company Number: None

PATIENT
  Age: 37 Year
  Sex: Female

DRUGS (2)
  1. NAPROXEN [Suspect]
     Active Substance: NAPROXEN
     Indication: Sciatica
     Dosage: DAILY DOSAGE: 1000MG
     Route: 065
     Dates: start: 20250729, end: 20251025
  2. OMEPRAZOLE [Concomitant]
     Active Substance: OMEPRAZOLE
     Indication: Product used for unknown indication
     Dosage: GLENMARK
     Dates: start: 20250729

REACTIONS (8)
  - Urticaria [Recovering/Resolving]
  - Wheezing [Recovered/Resolved]
  - Malaise [Not Recovered/Not Resolved]
  - Pharyngeal swelling [Recovered/Resolved]
  - Vomiting [Recovered/Resolved]
  - Ear swelling [Recovered/Resolved]
  - Pruritus [Not Recovered/Not Resolved]
  - Skin burning sensation [Recovering/Resolving]

NARRATIVE: CASE EVENT DATE: 20251024
